FAERS Safety Report 15808366 (Version 4)
Quarter: 2019Q2

REPORT INFORMATION
  Report Type: Spontaneous
  Country: JP (occurrence: JP)
  Receive Date: 20190110
  Receipt Date: 20190624
  Transmission Date: 20190711
  Serious: Yes (Death, Hospitalization)
  Sender: FDA-Public Use
  Company Number: JP-PFIZER INC-2018530625

PATIENT
  Age: 40 Year
  Sex: Male
  Weight: 58 kg

DRUGS (1)
  1. LORBRENA [Suspect]
     Active Substance: LORLATINIB
     Dosage: UNK
     Route: 048
     Dates: start: 20181122, end: 20190112

REACTIONS (5)
  - Pneumonia [Fatal]
  - Neoplasm progression [Fatal]
  - Oedema [Unknown]
  - Respiratory failure [Fatal]
  - Facial spasm [Unknown]
